FAERS Safety Report 20908906 (Version 1)
Quarter: 2022Q2

REPORT INFORMATION
  Report Type: Spontaneous
  Country: JP (occurrence: JP)
  Receive Date: 20220603
  Receipt Date: 20220603
  Transmission Date: 20220721
  Serious: Yes (Other)
  Sender: FDA-Public Use
  Company Number: JP-SAKK-01123274

PATIENT
  Age: 71 Year
  Sex: Male

DRUGS (1)
  1. PLAVIX [Suspect]
     Active Substance: CLOPIDOGREL BISULFATE
     Indication: Cerebral infarction
     Route: 048

REACTIONS (7)
  - Colon cancer [Unknown]
  - Hyperhidrosis [Unknown]
  - Road traffic accident [Unknown]
  - Renal function test abnormal [Unknown]
  - Liver function test abnormal [Unknown]
  - Blood pressure increased [Unknown]
  - Pyrexia [Unknown]
